FAERS Safety Report 9447413 (Version 2)
Quarter: 2013Q3

REPORT INFORMATION
  Report Type: Spontaneous
  Country: US (occurrence: US)
  Receive Date: 20130806
  Receipt Date: 20130930
  Transmission Date: 20140515
  Serious: Yes (Other)
  Sender: FDA-Public Use
  Company Number: USA/USA/13/0033608

PATIENT
  Age: 13 Year
  Sex: Female
  Weight: 65.77 kg

DRUGS (7)
  1. ZENATANE [Suspect]
     Indication: ACNE CYSTIC
     Route: 048
     Dates: start: 20130703, end: 20130724
  2. JUNEL (ANOVLAR) [Concomitant]
  3. CYPROHEPTADINE (CYPROHEPTADINE) [Concomitant]
  4. MULTIVITAMIN (VIGRAN) [Concomitant]
  5. FISH OIL (FISH OIL) [Concomitant]
  6. FLAX SEED (LINUM USITATISSIMUM SEED OIL) [Concomitant]
  7. B12 (CYANOCOBALAMIN) [Concomitant]

REACTIONS (22)
  - Vision blurred [None]
  - Chills [None]
  - Hypersomnia [None]
  - Lacrimation increased [None]
  - Fatigue [None]
  - Increased appetite [None]
  - Weight increased [None]
  - Disturbance in attention [None]
  - Back pain [None]
  - Pain in extremity [None]
  - Dizziness [None]
  - Asthenia [None]
  - Arthralgia [None]
  - Arthralgia [None]
  - Arthralgia [None]
  - Headache [None]
  - Depression [None]
  - Pain [None]
  - Nausea [None]
  - Vomiting [None]
  - Depressed mood [None]
  - Eye inflammation [None]
